FAERS Safety Report 8862393 (Version 2)
Quarter: 2012Q4

REPORT INFORMATION
  Report Type: 
  Country: IE (occurrence: IE)
  Receive Date: 20121026
  Receipt Date: 20121128
  Transmission Date: 20130627
  Serious: Yes (Other)
  Sender: FDA-Public Use
  Company Number: IE-PFIZER INC-2012263222

PATIENT
  Age: 55 Year
  Sex: Female
  Weight: 154 kg

DRUGS (1)
  1. DETRUSITOL XL [Suspect]
     Indication: STRESS INCONTINENCE
     Dosage: 2 mg, 1x/day
     Route: 048
     Dates: start: 20121012, end: 20121015

REACTIONS (7)
  - Urinary retention [Recovered/Resolved]
  - Malaise [Recovered/Resolved]
  - Abdominal pain upper [Recovered/Resolved]
  - Oedema peripheral [Recovered/Resolved]
  - Back pain [Recovered/Resolved]
  - Lethargy [Recovered/Resolved]
  - Fatigue [Recovered/Resolved]
